FAERS Safety Report 18414713 (Version 1)
Quarter: 2020Q4

REPORT INFORMATION
  Report Type: Report from Study
  Country: IT (occurrence: IT)
  Receive Date: 20201022
  Receipt Date: 20201022
  Transmission Date: 20210114
  Serious: Yes (Hospitalization)
  Sender: FDA-Public Use
  Company Number: IT-PFIZER INC-2020408103

PATIENT
  Age: 36 Year
  Sex: Male

DRUGS (1)
  1. MINOXIDIL. [Suspect]
     Active Substance: MINOXIDIL
     Dosage: 400 MG, 1X/DAY
     Route: 048
     Dates: start: 20200915, end: 20200915

REACTIONS (2)
  - Accidental overdose [Recovering/Resolving]
  - Hypotensive crisis [Recovering/Resolving]

NARRATIVE: CASE EVENT DATE: 20200915
